FAERS Safety Report 6456253-1 (Version None)
Quarter: 2009Q4

REPORT INFORMATION
  Report Type: 
  Country: None (occurrence: None)
  Receive Date: 20091124
  Receipt Date: 20091124
  Transmission Date: 20100525
  Serious: No
  Sender: FDA-Public Use
  Company Number: None

PATIENT
  Age: 68 Year
  Sex: Male

DRUGS (2)
  1. BUPIVACAINE [Suspect]
     Indication: CATARACT
     Dosage: 10 ML BUFFER 1 DOSE
     Dates: start: 20091111
  2. LIDOCAINE [Suspect]
     Dosage: 10 ML BUFFER 1 DOSE
     Dates: start: 20091111

REACTIONS (1)
  - EYE MOVEMENT DISORDER [None]
